FAERS Safety Report 7218953-5 (Version None)
Quarter: 2011Q1

REPORT INFORMATION
  Report Type: 
  Country: None (occurrence: None)
  Receive Date: 20110111
  Receipt Date: 20101230
  Transmission Date: 20110831
  Serious: Yes (Hospitalization)
  Sender: FDA-Public Use
  Company Number: US-BIOGENIDEC-2010BI039265

PATIENT
  Age: 47 Year
  Sex: Female
  Weight: 54 kg

DRUGS (13)
  1. TYSABRI [Suspect]
     Indication: MULTIPLE SCLEROSIS
     Route: 042
     Dates: start: 20070614, end: 20080811
  2. BELLAMINE [Concomitant]
     Indication: CROHN'S DISEASE
     Route: 048
  3. ZANTAC [Concomitant]
     Indication: GASTROOESOPHAGEAL REFLUX DISEASE
     Route: 048
  4. EFFEXOR [Concomitant]
     Indication: DEPRESSION
     Route: 048
  5. OXYBUTYNIN [Concomitant]
     Indication: HYPERTONIC BLADDER
     Route: 048
  6. TYLENOL [Concomitant]
  7. OXYCODONE [Concomitant]
     Indication: PAIN
     Route: 048
  8. NEXIUM [Concomitant]
     Indication: GASTROOESOPHAGEAL REFLUX DISEASE
     Route: 048
  9. PHENERGAN [Concomitant]
     Indication: NAUSEA
     Route: 048
  10. TYSABRI [Suspect]
     Route: 042
     Dates: start: 20081121, end: 20101028
  11. AMPYRA [Concomitant]
     Dates: start: 20101001
  12. PREDNISONE [Concomitant]
     Indication: TREMOR
     Route: 048
  13. DIAZEPAM [Concomitant]
     Indication: MUSCLE TIGHTNESS
     Route: 048

REACTIONS (4)
  - HEPATIC ENCEPHALOPATHY [None]
  - ACCIDENTAL OVERDOSE [None]
  - MULTIPLE SCLEROSIS RELAPSE [None]
  - BLOOD ELECTROLYTES INCREASED [None]
